FAERS Safety Report 8103932-6 (Version None)
Quarter: 2012Q1

REPORT INFORMATION
  Report Type: 
  Country: None (occurrence: None)
  Receive Date: 20120127
  Receipt Date: 20120112
  Transmission Date: 20120608
  Serious: Yes (Death, Hospitalization, Other)
  Sender: FDA-Public Use
  Company Number: 2011SGN00311

PATIENT
  Age: 23 Year
  Sex: Male

DRUGS (1)
  1. ADCETRIS [Suspect]
     Indication: HODGKIN'S DISEASE
     Dates: start: 20111027

REACTIONS (6)
  - NEUTROPENIA [None]
  - DISEASE PROGRESSION [None]
  - ALOPECIA [None]
  - PNEUMONIA [None]
  - SEPTIC SHOCK [None]
  - HODGKIN'S DISEASE [None]
